FAERS Safety Report 14098822 (Version 1)
Quarter: 2017Q4

REPORT INFORMATION
  Report Type: Spontaneous
  Country: US (occurrence: US)
  Receive Date: 20171017
  Receipt Date: 20171017
  Transmission Date: 20180321
  Serious: Yes (Hospitalization, Other)
  Sender: FDA-Public Use
  Company Number: US-PFIZER INC-2017445546

PATIENT
  Age: 74 Year
  Sex: Female
  Weight: 64.86 kg

DRUGS (11)
  1. LOTEMAX [Concomitant]
     Active Substance: LOTEPREDNOL ETABONATE
     Indication: EYE INFECTION VIRAL
     Dosage: APPLY ON EACH EYE AT BEDTIME
  2. GABAPENTIN. [Concomitant]
     Active Substance: GABAPENTIN
     Indication: NEUROPATHY PERIPHERAL
     Dosage: 300 MG, 3X/DAY
  3. LOTEMAX [Concomitant]
     Active Substance: LOTEPREDNOL ETABONATE
     Indication: EYE INFECTION VIRAL
     Dosage: ONE DROP IN EACH EYE 3 TIMES A DAY
     Route: 047
  4. VITAMIN C [Concomitant]
     Active Substance: ASCORBIC ACID
     Indication: PROPHYLAXIS
     Dosage: UNK, 1X/DAY
  5. TIMOLOL. [Concomitant]
     Active Substance: TIMOLOL
     Indication: GLAUCOMA
     Dosage: 2 GTT, 2X/DAY (ONE EYEDROP TWICE A DAY IN EACH EYE)
     Route: 047
  6. LETROZOLE. [Concomitant]
     Active Substance: LETROZOLE
     Dosage: 2.5 MG, 1X/DAY
  7. LUMIGAN [Concomitant]
     Active Substance: BIMATOPROST
     Indication: GLAUCOMA
     Dosage: 2 GTT, DAILY (ONE EYE DROP IN EACH EYE AT BEDTIME)
     Route: 047
  8. VALACYCLOVIR [Concomitant]
     Active Substance: VALACYCLOVIR HYDROCHLORIDE
     Indication: EYE INFECTION VIRAL
     Dosage: 1000 MG, 3X/DAY (ONE 1000MG TABLET THREE TIMES A DAY)
  9. IBRANCE [Suspect]
     Active Substance: PALBOCICLIB
     Indication: BREAST CANCER METASTATIC
     Dosage: 100 MG, 1X/DAY
     Dates: end: 201710
  10. MULTIVITAMIN [Concomitant]
     Active Substance: VITAMINS
     Dosage: UNK, 1X/DAY
  11. METFORMIN [Concomitant]
     Active Substance: METFORMIN HYDROCHLORIDE
     Indication: DIABETES MELLITUS
     Dosage: UNK, 2X/DAY

REACTIONS (8)
  - Eye infection viral [Recovered/Resolved]
  - Visual impairment [Unknown]
  - Vision blurred [Unknown]
  - Decreased immune responsiveness [Unknown]
  - White blood cell count decreased [Unknown]
  - Vomiting [Recovered/Resolved]
  - Urinary tract infection [Recovered/Resolved]
  - Corneal scar [Unknown]

NARRATIVE: CASE EVENT DATE: 20171005
